FAERS Safety Report 8126775 (Version 2)
Quarter: 2012Q4

REPORT INFORMATION
  Report Type: Report from Study
  Country: US (occurrence: US)
  Receive Date: 20110908
  Receipt Date: 20120927
  Transmission Date: 20130627
  Serious: Yes (Death, Hospitalization, Other)
  Sender: FDA-Public Use
  Company Number: US-BRISTOL-MYERS SQUIBB COMPANY-15948243

PATIENT
  Age: 61 Year
  Sex: Male

DRUGS (13)
  1. IPILIMUMAB [Suspect]
     Indication: MALIGNANT MELANOMA
     Dosage: C2 and C3 held,26May2011:1051 mg.
     Route: 042
     Dates: start: 20110526, end: 20110526
  2. TEMOZOLOMIDE [Suspect]
     Indication: MALIGNANT MELANOMA
     Dosage: 4 days every 3 weeks
restarted 21Jul11,450mg:25May11-29May11,390 mg: 21Jul11-24Jul-11.
     Route: 048
     Dates: start: 20110526
  3. FLOMAX [Concomitant]
  4. IMODIUM [Concomitant]
  5. LEVITRA [Concomitant]
  6. LOMOTIL [Concomitant]
  7. MINOCYCLINE [Concomitant]
  8. NYSTATIN [Concomitant]
  9. PRILOSEC [Concomitant]
  10. LEVOTHYROXINE [Concomitant]
  11. ZOFRAN [Concomitant]
  12. DEXAMETHASONE [Concomitant]
  13. AMBIEN [Concomitant]

REACTIONS (10)
  - Cardiopulmonary failure [Fatal]
  - Colitis ulcerative [Unknown]
  - Diarrhoea [Recovering/Resolving]
  - Renal failure acute [Unknown]
  - Malnutrition [Unknown]
  - Weight decreased [Recovering/Resolving]
  - Pneumonia [Unknown]
  - Sepsis [Unknown]
  - Hypertension [Unknown]
  - Atrial fibrillation [Unknown]
